FAERS Safety Report 5164007-1 (Version None)
Quarter: 2006Q4

REPORT INFORMATION
  Report Type: 
  Country: None (occurrence: None)
  Receive Date: 20061204
  Receipt Date: 20010215
  Transmission Date: 20070319
  Serious: Yes (Hospitalization)
  Sender: FDA-Public Use
  Company Number: 10719136

PATIENT
  Age: 24 Hour
  Sex: Male
  Weight: 3 kg

DRUGS (8)
  1. ZERIT [Suspect]
     Dosage: UNTIL 5 WEEKS OF GESTATION AND FROM 12 WEEKS.  ALSO RECEIVED FOR 6 WEEKS AFTER DELIVERY.
     Route: 064
  2. CRIXIVAN [Suspect]
     Dosage: UNTIL 5 WEEKS OF GESTATION AND FROM 12 WEEKS
     Route: 064
  3. EPIVIR [Suspect]
     Dosage: UNTIL 5 WEEKS OF GESTATION AND FROM 12 WEEKS.  ALSO RECEIVED FOR 6 WEEKS AFTER DELIVERY.
     Route: 064
  4. RETROVIR [Suspect]
     Dosage: AT DELIVERY.
     Route: 064
  5. VITAMINS [Concomitant]
  6. IRON [Concomitant]
  7. SPASFON [Concomitant]
  8. MAGNESIUM + PYRIDOXINE [Concomitant]

REACTIONS (5)
  - ASPARTATE AMINOTRANSFERASE INCREASED [None]
  - BLOOD LACTIC ACID INCREASED [None]
  - HYPERTRIGLYCERIDAEMIA [None]
  - NEUTROPENIA [None]
  - PREGNANCY [None]
